FAERS Safety Report 15738860 (Version 4)
Quarter: 2019Q1

REPORT INFORMATION
  Report Type: Report from Study
  Country: US (occurrence: US)
  Receive Date: 20181219
  Receipt Date: 20190315
  Transmission Date: 20190417
  Serious: Yes (Hospitalization, Other)
  Sender: FDA-Public Use
  Company Number: US-ROCHE-2229667

PATIENT
  Age: 79 Year
  Sex: Female
  Weight: 56.2 kg

DRUGS (2)
  1. ATEZOLIZUMAB. [Suspect]
     Active Substance: ATEZOLIZUMAB
     Indication: MYELODYSPLASTIC SYNDROME
     Dosage: 27/NOV/2018, LAST DOSE
     Route: 042
     Dates: start: 20181120
  2. GUADECITABINE [Suspect]
     Active Substance: GUADECITABINE
     Indication: MYELODYSPLASTIC SYNDROME
     Route: 058
     Dates: start: 20181125

REACTIONS (5)
  - Febrile neutropenia [Unknown]
  - Seizure [Recovered/Resolved]
  - Encephalitis [Unknown]
  - Pneumonia [Unknown]
  - Intestinal perforation [Recovered/Resolved]

NARRATIVE: CASE EVENT DATE: 20181207
